FAERS Safety Report 6868125-9 (Version None)
Quarter: 2010Q3

REPORT INFORMATION
  Report Type: 
  Country: None (occurrence: None)
  Receive Date: 20100722
  Receipt Date: 20080521
  Transmission Date: 20110219
  Serious: No
  Sender: FDA-Public Use
  Company Number: US-PFIZER INC-2008045456

PATIENT
  Sex: Male
  Weight: 95.25 kg

DRUGS (1)
  1. CHANTIX [Suspect]
     Indication: SMOKING CESSATION THERAPY
     Dates: start: 20080515, end: 20080521

REACTIONS (5)
  - DRY SKIN [None]
  - MEDICATION ERROR [None]
  - PRURITUS [None]
  - SKIN DEPIGMENTATION [None]
  - SKIN EXFOLIATION [None]
